FAERS Safety Report 6544081-8 (Version None)
Quarter: 2010Q1

REPORT INFORMATION
  Report Type: 
  Country: None (occurrence: None)
  Receive Date: 20100119
  Receipt Date: 20100119
  Transmission Date: 20100710
  Serious: Yes (Life-Threatening)
  Sender: FDA-Public Use
  Company Number: None

PATIENT
  Sex: Male
  Weight: 65.1 kg

DRUGS (1)
  1. DEMEROL [Suspect]
     Indication: OESOPHAGOGASTRODUODENOSCOPY
     Dosage: 25MG ONCE IV
     Route: 042
     Dates: start: 20100102, end: 20100102

REACTIONS (2)
  - LARYNGEAL OEDEMA [None]
  - WHEEZING [None]
